FAERS Safety Report 9242071 (Version 2)
Quarter: 2013Q2

REPORT INFORMATION
  Report Type: Report from Study
  Country: US (occurrence: US)
  Receive Date: 20130419
  Receipt Date: 20130516
  Transmission Date: 20140414
  Serious: Yes (Other)
  Sender: FDA-Public Use
  Company Number: US-ASTELLAS-2013US004065

PATIENT
  Age: 64 Year
  Sex: Female
  Weight: 95 kg

DRUGS (3)
  1. ERLOTINIB TABLET [Suspect]
     Indication: NON-SMALL CELL LUNG CANCER
     Dosage: 150 MG, UID/QD
     Route: 048
     Dates: start: 20130111
  2. BENICAR [Concomitant]
     Indication: PRODUCT USED FOR UNKNOWN INDICATION
     Dosage: 40 MG 1/2 TABLET, UID/QD
     Route: 048
     Dates: start: 20110919
  3. LEVOXYL [Concomitant]
     Indication: PRODUCT USED FOR UNKNOWN INDICATION
     Dosage: 75 UG, UID/QD
     Route: 048
     Dates: start: 20110919

REACTIONS (14)
  - Dry mouth [Not Recovered/Not Resolved]
  - Blood magnesium decreased [Unknown]
  - Dyskinesia [Unknown]
  - Hypoaesthesia [Unknown]
  - Dermatitis [Unknown]
  - Metastases to bone [Unknown]
  - Dandruff [Not Recovered/Not Resolved]
  - Diarrhoea [Not Recovered/Not Resolved]
  - Abdominal discomfort [Not Recovered/Not Resolved]
  - Fatigue [Recovered/Resolved]
  - Skin exfoliation [Recovered/Resolved]
  - Rash [Not Recovered/Not Resolved]
  - Pruritus [Not Recovered/Not Resolved]
  - Alopecia [Not Recovered/Not Resolved]
